FAERS Safety Report 26210048 (Version 1)
Quarter: 2025Q4

REPORT INFORMATION
  Report Type: Spontaneous
  Country: US (occurrence: US)
  Receive Date: 20251229
  Receipt Date: 20251229
  Transmission Date: 20260119
  Serious: No
  Sender: MERCK SHARP & DOHME LLC
  Company Number: US-009507513-2361567

PATIENT
  Age: 70 Year
  Sex: Male

DRUGS (4)
  1. ERTAPENEM [Suspect]
     Active Substance: ERTAPENEM
     Indication: Capnocytophaga infection
     Route: 042
  2. PREDNISONE [Concomitant]
     Active Substance: PREDNISONE
  3. PIPERACILLIN AND TAZOBACTAM [Concomitant]
     Active Substance: PIPERACILLIN SODIUM\TAZOBACTAM SODIUM
     Indication: Capnocytophaga infection
  4. VANCOMYCIN [Concomitant]
     Active Substance: VANCOMYCIN
     Indication: Capnocytophaga infection

REACTIONS (1)
  - Product use in unapproved indication [Unknown]
